FAERS Safety Report 6041340-2 (Version None)
Quarter: 2009Q1

REPORT INFORMATION
  Report Type: 
  Country: None (occurrence: None)
  Receive Date: 20090116
  Receipt Date: 20081006
  Transmission Date: 20090719
  Serious: No
  Sender: FDA-Public Use
  Company Number: US-BRISTOL-MYERS SQUIBB COMPANY-14358832

PATIENT
  Age: 37 Year
  Sex: Male
  Weight: 82 kg

DRUGS (3)
  1. ABILIFY [Suspect]
     Indication: BIPOLAR DISORDER
     Dosage: INITIAL DOSE 5MG STARTED FROM 31JUL08, INCREASED TO 10MG THEN TO 10MG BID
  2. XANAX [Concomitant]
  3. MUCINEX [Concomitant]

REACTIONS (1)
  - URINE ANALYSIS ABNORMAL [None]
